FAERS Safety Report 10154251 (Version 1)
Quarter: 2014Q2

REPORT INFORMATION
  Report Type: Spontaneous
  Country: FR (occurrence: None)
  Receive Date: 20140502
  Receipt Date: 20140502
  Transmission Date: 20141212
  Serious: Yes (Hospitalization)
  Sender: FDA-Public Use
  Company Number: 2310136

PATIENT
  Age: 60 Year
  Sex: Male

DRUGS (8)
  1. VINCRISTINE SULFATE [Suspect]
     Indication: BURKITT^S LYMPHOMA
     Dosage: CYCLICAL
     Route: 042
     Dates: start: 20140312, end: 20140319
  2. METHOTREXATE [Suspect]
     Indication: BURKITT^S LYMPHOMA
     Dosage: CYCLICAL
     Route: 037
     Dates: start: 20140313, end: 20140313
  3. PREDNISONE [Suspect]
     Indication: BURKITT^S LYMPHOMA
     Dosage: 120 MG MILLIGRAM(S) ORAL
     Route: 048
     Dates: start: 20140312, end: 20140323
  4. ENDOXAN  /00021101/ [Suspect]
     Indication: BURKITT^S LYMPHOMA
     Dosage: CYCLICAL
     Route: 042
     Dates: start: 20140312, end: 20140321
  5. DEPO-MEDROL [Suspect]
     Indication: BURKITT^S LYMPHOMA
     Dates: start: 20140313, end: 20140313
  6. NORVIR [Concomitant]
  7. PREZISTA [Concomitant]
  8. TRUVADA [Concomitant]

REACTIONS (1)
  - Renal failure acute [None]
